FAERS Safety Report 7251533-4 (Version None)
Quarter: 2011Q1

REPORT INFORMATION
  Report Type: 
  Country: None (occurrence: None)
  Receive Date: 20110128
  Receipt Date: 20110114
  Transmission Date: 20110831
  Serious: Yes (Hospitalization)
  Sender: FDA-Public Use
  Company Number: US-ELI_LILLY_AND_COMPANY-US201101003871

PATIENT
  Sex: Female

DRUGS (7)
  1. CRESTOR [Concomitant]
     Dosage: 10 MG, UNK
  2. LISINOPRIL [Concomitant]
     Dosage: 40 MG, UNK
  3. CALCIUM [Concomitant]
     Dosage: 500 MG, DAILY (1/D)
  4. VITAMIN D [Concomitant]
     Dosage: 400 IU, DAILY (1/D)
  5. FORTEO [Suspect]
     Indication: OSTEOPOROSIS
     Dosage: 20 UG, DAILY (1/D)
     Dates: start: 20101124
  6. AMIODARONE [Concomitant]
     Indication: CARDIAC DISORDER
     Dosage: 200 MG, UNK
  7. METOPROLOL [Concomitant]
     Indication: CARDIAC DISORDER
     Dosage: 500 MG, UNK

REACTIONS (9)
  - GOUT [None]
  - MALAISE [None]
  - DIARRHOEA HAEMORRHAGIC [None]
  - VOMITING [None]
  - COLITIS [None]
  - ABDOMINAL PAIN UPPER [None]
  - ASTHENIA [None]
  - FEELING ABNORMAL [None]
  - DIARRHOEA [None]
